FAERS Safety Report 8848239 (Version 1)
Quarter: 2012Q4

REPORT INFORMATION
  Report Type: 
  Country: US (occurrence: US)
  Receive Date: 20121018
  Receipt Date: 20121018
  Transmission Date: 20130627
  Serious: Yes (Death)
  Sender: FDA-Public Use
  Company Number: US-ROCHE-1139892

PATIENT
  Age: 5 Year
  Sex: Male

DRUGS (1)
  1. PROTROPIN [Suspect]
     Indication: GROWTH HORMONE DEFICIENCY
     Route: 058
     Dates: start: 199107

REACTIONS (2)
  - Hernia [Fatal]
  - Hydrocele [Fatal]
